FAERS Safety Report 6235647-3 (Version None)
Quarter: 2009Q2

REPORT INFORMATION
  Report Type: 
  Country: None (occurrence: None)
  Receive Date: 20090616
  Receipt Date: 20090603
  Transmission Date: 20091009
  Serious: Yes (Other)
  Sender: FDA-Public Use
  Company Number: 430040K09USA

PATIENT
  Age: 54 Year
  Sex: Male
  Weight: 66 kg

DRUGS (4)
  1. NOVANTRONE [Suspect]
     Indication: MULTIPLE SCLEROSIS
     Dosage: 1 IN 1 MONTHS; 1 IN 3 MONTHS, INTRAVENOUS
     Route: 042
     Dates: start: 20080221, end: 20080801
  2. NOVANTRONE [Suspect]
     Indication: MULTIPLE SCLEROSIS
     Dosage: 1 IN 1 MONTHS; 1 IN 3 MONTHS, INTRAVENOUS
     Route: 042
     Dates: start: 20090201, end: 20090501
  3. BACLOFEN [Concomitant]
  4. PRIMIDONE [Concomitant]

REACTIONS (1)
  - EJECTION FRACTION DECREASED [None]
